FAERS Safety Report 23162676 (Version 2)
Quarter: 2023Q4

REPORT INFORMATION
  Report Type: Spontaneous
  Country: JP (occurrence: JP)
  Receive Date: 20231109
  Receipt Date: 20231201
  Transmission Date: 20240110
  Serious: Yes (Other)
  Sender: FDA-Public Use
  Company Number: JP-Merck Healthcare KGaA-2023485713

PATIENT
  Age: 54 Year
  Sex: Female
  Weight: 78 kg

DRUGS (4)
  1. METGLUCO [Suspect]
     Active Substance: METFORMIN HYDROCHLORIDE
     Indication: Diabetes mellitus
     Route: 048
  2. CANAGLIFLOZIN [Suspect]
     Active Substance: CANAGLIFLOZIN
     Indication: Diabetes mellitus
     Route: 048
  3. GLIMEPIRIDE [Concomitant]
     Active Substance: GLIMEPIRIDE
     Indication: Diabetes mellitus
  4. ROSUVASTATIN [Concomitant]
     Active Substance: ROSUVASTATIN
     Indication: Product used for unknown indication

REACTIONS (10)
  - Blood triglycerides increased [Unknown]
  - Weight decreased [Unknown]
  - Blood cholesterol increased [Unknown]
  - Blood magnesium increased [Unknown]
  - Blood lactate dehydrogenase increased [Unknown]
  - Cystitis [Unknown]
  - Glycosylated haemoglobin increased [Unknown]
  - Protein urine present [Unknown]
  - Glucose urine present [Unknown]
  - Blood alkaline phosphatase increased [Unknown]
